FAERS Safety Report 7888851-2 (Version None)
Quarter: 2011Q4

REPORT INFORMATION
  Report Type: 
  Country: None (occurrence: None)
  Receive Date: 20111031
  Receipt Date: 20110929
  Transmission Date: 20120403
  Serious: Yes (Other)
  Sender: FDA-Public Use
  Company Number: 2011SP046652

PATIENT
  Age: 50 Year
  Sex: Female

DRUGS (1)
  1. BETAMETHASONE SODIUM PHOSPHATE [Suspect]
     Indication: EYE SWELLING
     Dosage: ONCE
     Dates: start: 20110901

REACTIONS (3)
  - OFF LABEL USE [None]
  - HERPES OPHTHALMIC [None]
  - INCORRECT ROUTE OF DRUG ADMINISTRATION [None]
